FAERS Safety Report 7103026-2 (Version None)
Quarter: 2010Q4

REPORT INFORMATION
  Report Type: 
  Country: None (occurrence: None)
  Receive Date: 20101109
  Receipt Date: 20101025
  Transmission Date: 20110411
  Serious: Yes (Hospitalization)
  Sender: FDA-Public Use
  Company Number: 021069

PATIENT
  Sex: Male

DRUGS (1)
  1. CIMZIA [Suspect]
     Dosage: (400 MG 1X/MONTH SUBCUTANEOUS)
     Route: 058

REACTIONS (2)
  - JAW OPERATION [None]
  - ROAD TRAFFIC ACCIDENT [None]
